FAERS Safety Report 13662108 (Version 3)
Quarter: 2018Q2

REPORT INFORMATION
  Report Type: Spontaneous
  Country: US (occurrence: US)
  Receive Date: 20170616
  Receipt Date: 20180411
  Transmission Date: 20180711
  Serious: No
  Sender: FDA-Public Use
  Company Number: US-ACTELION-A-US2017-155416

PATIENT
  Age: 65 Year
  Sex: Female
  Weight: 49.89 kg

DRUGS (4)
  1. VELETRI [Suspect]
     Active Substance: EPOPROSTENOL
     Indication: PULMONARY HYPERTENSION
     Dosage: 57 NG/KG, PER MIN
     Route: 042
  2. TRACLEER [Suspect]
     Active Substance: BOSENTAN
     Indication: PULMONARY HYPERTENSION
     Dosage: 125 MG, BID
     Route: 048
  3. VELETRI [Suspect]
     Active Substance: EPOPROSTENOL
     Dosage: 55 NG/KG, PER MIN
     Route: 042
  4. ADCIRCA [Concomitant]
     Active Substance: TADALAFIL

REACTIONS (6)
  - Decreased appetite [Unknown]
  - Pain in extremity [Unknown]
  - Weight decreased [Unknown]
  - Pain in jaw [Not Recovered/Not Resolved]
  - Diarrhoea [Not Recovered/Not Resolved]
  - Vomiting [Unknown]
